FAERS Safety Report 8080043-X (Version None)
Quarter: 2012Q1

REPORT INFORMATION
  Report Type: 
  Country: None (occurrence: None)
  Receive Date: 20120128
  Receipt Date: 20110817
  Transmission Date: 20120608
  Serious: No
  Sender: FDA-Public Use
  Company Number: US-ABBOTT-11P-163-0845937-00

PATIENT
  Sex: Female

DRUGS (7)
  1. CLOBETASOL [Concomitant]
  2. FLOVENT [Concomitant]
     Indication: ASTHMA
  3. ALBUTEROL [Concomitant]
     Indication: ASTHMA
  4. HUMIRA [Suspect]
     Indication: PSORIASIS
     Dates: start: 20110103, end: 20110725
  5. FLONASE [Concomitant]
     Indication: ASTHMA
  6. CLOBETASOL [Concomitant]
     Indication: PSORIASIS
  7. TUSSINEX [Concomitant]
     Indication: ASTHMA

REACTIONS (4)
  - PYREXIA [None]
  - RASH [None]
  - ANIMAL SCRATCH [None]
  - LUPUS-LIKE SYNDROME [None]
